FAERS Safety Report 16357381 (Version 1)
Quarter: 2019Q2

REPORT INFORMATION
  Report Type: Spontaneous
  Country: DE (occurrence: DE)
  Receive Date: 20190527
  Receipt Date: 20190527
  Transmission Date: 20190711
  Serious: Yes (Death, Hospitalization, Other)
  Sender: FDA-Public Use
  Company Number: DE-HETERO CORPORATE-HET2019DE00737

PATIENT
  Age: 22 Year
  Sex: Female

DRUGS (4)
  1. TEGRETAL [Suspect]
     Active Substance: CARBAMAZEPINE
     Indication: SEIZURE
     Dosage: 100 MG/KG, QD
     Route: 065
  2. LEVETIRACETAM. [Suspect]
     Active Substance: LEVETIRACETAM
     Indication: SEIZURE
     Dosage: UNK
     Route: 065
  3. KEPPRA [Suspect]
     Active Substance: LEVETIRACETAM
     Indication: SEIZURE
     Dosage: 1000 MG/KG, QD
     Route: 048
  4. LAMOTRIGINE. [Concomitant]
     Active Substance: LAMOTRIGINE
     Indication: PRODUCT USED FOR UNKNOWN INDICATION
     Dosage: UNK
     Route: 065

REACTIONS (16)
  - Seizure [Unknown]
  - Renal tubular necrosis [Fatal]
  - Liver injury [Fatal]
  - Fall [Unknown]
  - Pyrexia [Unknown]
  - Multiple organ dysfunction syndrome [Fatal]
  - Hepatic necrosis [Fatal]
  - Restlessness [Unknown]
  - Hypotension [Unknown]
  - Pulmonary oedema [Unknown]
  - Tachycardia [Unknown]
  - Renal failure [Fatal]
  - Acidosis [Fatal]
  - Hemiparesis [Unknown]
  - Shock [Unknown]
  - Acute hepatic failure [Fatal]
